FAERS Safety Report 9476428 (Version 2)
Quarter: 2013Q3

REPORT INFORMATION
  Report Type: Spontaneous
  Country: US (occurrence: US)
  Receive Date: 20130826
  Receipt Date: 20130830
  Transmission Date: 20140515
  Serious: Yes (Other)
  Sender: FDA-Public Use
  Company Number: US-SANOFI-AVENTIS-2013SA083904

PATIENT
  Age: 57 Year
  Sex: Male
  Weight: 86.18 kg

DRUGS (2)
  1. ZOLPIDEM [Suspect]
     Indication: SLEEP DISORDER
     Route: 065
     Dates: start: 20120125, end: 20120125
  2. TEGRETOL [Concomitant]
     Route: 065

REACTIONS (2)
  - Impaired driving ability [Recovered/Resolved]
  - Loss of consciousness [Recovered/Resolved]
